FAERS Safety Report 9746489 (Version 1)
Quarter: 2013Q4

REPORT INFORMATION
  Report Type: Spontaneous
  Country: US (occurrence: None)
  Receive Date: 20131209
  Receipt Date: 20131209
  Transmission Date: 20140711
  Serious: No
  Sender: FDA-Public Use
  Company Number: None

PATIENT
  Age: 64 Year
  Sex: 0
  Weight: 64.86 kg

DRUGS (1)
  1. LEVAQUIN (LEVOFLOXACIN) [Suspect]
     Indication: SINUSITIS
     Dosage: 1 TABLET EVERY DAY; ONCE DAILY
     Route: 048
     Dates: start: 20131118, end: 20131122

REACTIONS (5)
  - Hypotension [None]
  - Blood glucose decreased [None]
  - Body temperature decreased [None]
  - Tendon disorder [None]
  - Pain [None]
